FAERS Safety Report 18260153 (Version 2)
Quarter: 2020Q3

REPORT INFORMATION
  Report Type: Spontaneous
  Country: US (occurrence: US)
  Receive Date: 20200913
  Receipt Date: 20200923
  Transmission Date: 20201103
  Serious: Yes (Hospitalization)
  Sender: FDA-Public Use
  Company Number: US-NOVOPROD-751884

PATIENT
  Sex: Male

DRUGS (3)
  1. LEVEMIR [Suspect]
     Active Substance: INSULIN DETEMIR
     Indication: TYPE 2 DIABETES MELLITUS
     Dosage: 15 IU, QD (AT BED TIME, HAS BEEN TAKING LESS THAN ROUTINE DOSE)
     Route: 058
     Dates: start: 1990
  2. LEVEMIR [Suspect]
     Active Substance: INSULIN DETEMIR
     Dosage: 15 IU, QD (AT BED TIME, HAS BEEN TAKING FOR 30 YEARS)
     Route: 058
  3. NOVOLOG [Suspect]
     Active Substance: INSULIN ASPART
     Indication: TYPE 2 DIABETES MELLITUS
     Dosage: 10 IU, QD ( DURING THE DAY, HAS BEEN TAKING FOR 30 YEARS)
     Route: 058
     Dates: start: 1990

REACTIONS (2)
  - Blood glucose decreased [Recovered/Resolved]
  - Infection [Recovered/Resolved]
